FAERS Safety Report 14868664 (Version 5)
Quarter: 2018Q2

REPORT INFORMATION
  Report Type: Spontaneous
  Country: US (occurrence: US)
  Receive Date: 20180509
  Receipt Date: 20180627
  Transmission Date: 20180711
  Serious: No
  Sender: FDA-Public Use
  Company Number: US-PFIZER INC-2017517765

PATIENT
  Age: 57 Year
  Sex: Male
  Weight: 95 kg

DRUGS (2)
  1. GENOTROPIN [Suspect]
     Active Substance: SOMATROPIN
     Indication: GROWTH HORMONE DEFICIENCY
     Dosage: 0.15 MG, DAILY (ALTERNATING DOSES BETWEEN 0.1 AND 0.2, ONCE A DAY)
     Route: 058
  2. GENOTROPIN [Suspect]
     Active Substance: SOMATROPIN
     Indication: GROWTH HORMONE DEFICIENCY
     Dosage: 0.15 MG, DAILY (ALTERNATING WITH 0.10 MG AND 0.20 MG, EVERY OTHER DAY)
     Route: 030
     Dates: start: 20171017

REACTIONS (7)
  - Device defective [Unknown]
  - Incorrect route of drug administration [Unknown]
  - Intentional product misuse [Unknown]
  - Energy increased [Unknown]
  - Fatigue [Unknown]
  - Drug prescribing error [Unknown]
  - Drug dose omission [Unknown]

NARRATIVE: CASE EVENT DATE: 20180501
